FAERS Safety Report 7403751-X (Version None)
Quarter: 2011Q2

REPORT INFORMATION
  Report Type: 
  Country: None (occurrence: None)
  Receive Date: 20110408
  Receipt Date: 20110329
  Transmission Date: 20111010
  Serious: Yes (Other)
  Sender: FDA-Public Use
  Company Number: US-ELI_LILLY_AND_COMPANY-US201103008721

PATIENT
  Age: 53 Year
  Sex: Female
  Weight: 65.8 kg

DRUGS (5)
  1. CHANTIX [Concomitant]
     Dosage: 1 MG, BID
     Route: 048
  2. PROZAC [Suspect]
     Indication: DEPRESSION
     Dosage: 10 MG, QD
     Route: 048
     Dates: start: 20020101
  3. CHANTIX [Concomitant]
     Indication: SMOKING CESSATION THERAPY
     Dosage: 0.5 MG, QD
     Route: 048
     Dates: start: 20050101
  4. LORTAB [Concomitant]
  5. CHANTIX [Concomitant]
     Dosage: 0.5 MG, QD
     Route: 048
     Dates: start: 20110105, end: 20110314

REACTIONS (8)
  - INCREASED APPETITE [None]
  - SWELLING FACE [None]
  - BREAST ENLARGEMENT [None]
  - FOOT FRACTURE [None]
  - ABNORMAL DREAMS [None]
  - NAUSEA [None]
  - THINKING ABNORMAL [None]
  - DRUG INTERACTION [None]
